FAERS Safety Report 8001487-8 (Version None)
Quarter: 2011Q4

REPORT INFORMATION
  Report Type: 
  Country: None (occurrence: None)
  Receive Date: 20111222
  Receipt Date: 20111215
  Transmission Date: 20120403
  Serious: Yes (Life-Threatening)
  Sender: FDA-Public Use
  Company Number: CH-ROCHE-1022652

PATIENT
  Age: 32 Year
  Sex: Female

DRUGS (3)
  1. TORADOL [Suspect]
     Indication: PRODUCT USED FOR UNKNOWN INDICATION
     Dosage: DRUG WITHDRAWN
     Route: 048
     Dates: start: 20110930, end: 20111004
  2. ACETAMINOPHEN [Concomitant]
     Route: 048
     Dates: start: 20110929, end: 20111004
  3. KALETRA [Concomitant]
     Route: 048

REACTIONS (2)
  - ENCEPHALITIS [None]
  - BRAIN OEDEMA [None]
